FAERS Safety Report 25821441 (Version 1)
Quarter: 2025Q3

REPORT INFORMATION
  Report Type: Report from Study
  Country: CA (occurrence: US)
  Receive Date: 20250919
  Receipt Date: 20250919
  Transmission Date: 20251020
  Serious: Yes (Death, Other)
  Sender: TAKEDA
  Company Number: CA-TAKEDA-2025TUS054493

PATIENT
  Sex: Female

DRUGS (4)
  1. FRUQUINTINIB [Suspect]
     Active Substance: FRUQUINTINIB
     Indication: Colorectal cancer metastatic
  2. FELODIPINE [Concomitant]
     Active Substance: FELODIPINE
  3. CANDESARTAN [Concomitant]
     Active Substance: CANDESARTAN
  4. ROSUVASTATIN [Concomitant]
     Active Substance: ROSUVASTATIN

REACTIONS (4)
  - Malignant ascites [Fatal]
  - Colon cancer metastatic [Fatal]
  - Abdominal distension [Unknown]
  - Blood electrolytes decreased [Unknown]
